FAERS Safety Report 14018220 (Version 1)
Quarter: 2017Q3

REPORT INFORMATION
  Report Type: Spontaneous
  Country: US (occurrence: None)
  Receive Date: 20170927
  Receipt Date: 20170927
  Transmission Date: 20171128
  Serious: Yes (Life-Threatening, Hospitalization, Other)
  Sender: FDA-Public Use
  Company Number: None

PATIENT
  Age: 45 Year
  Sex: Female
  Weight: 111.13 kg

DRUGS (7)
  1. OXY [Concomitant]
     Active Substance: BENZOYL PEROXIDE
  2. LEVENTHRYOID [Concomitant]
  3. OXYCONTIN [Concomitant]
     Active Substance: OXYCODONE HYDROCHLORIDE
  4. XARELLTO [Concomitant]
  5. CONTRAVE [Suspect]
     Active Substance: BUPROPION HYDROCHLORIDE\NALTREXONE HYDROCHLORIDE
     Indication: WEIGHT DECREASED
     Dosage: ?
     Route: 048
  6. ADVIL [Concomitant]
     Active Substance: IBUPROFEN
  7. VALIUM [Concomitant]
     Active Substance: DIAZEPAM

REACTIONS (15)
  - Hallucination [None]
  - Irritability [None]
  - Aggression [None]
  - Mania [None]
  - Blood potassium decreased [None]
  - Anxiety [None]
  - Diarrhoea [None]
  - Suicidal ideation [None]
  - Panic attack [None]
  - Blood sodium decreased [None]
  - Asthenia [None]
  - Depression [None]
  - Gait disturbance [None]
  - Dysstasia [None]
  - Affective disorder [None]

NARRATIVE: CASE EVENT DATE: 20170303
